FAERS Safety Report 23763477 (Version 1)
Quarter: 2024Q2

REPORT INFORMATION
  Report Type: Spontaneous
  Country: DE (occurrence: DE)
  Receive Date: 20240419
  Receipt Date: 20240419
  Transmission Date: 20240716
  Serious: Yes (Hospitalization)
  Sender: FDA-Public Use
  Company Number: DE-BoehringerIngelheim-2024-BI-022967

PATIENT
  Sex: Male

DRUGS (1)
  1. PRADAXA [Suspect]
     Active Substance: DABIGATRAN ETEXILATE MESYLATE
     Indication: Haemodilution
     Dosage: FORM STRENGTH: 110 MILLIGRAM
     Route: 048
     Dates: end: 20240412

REACTIONS (1)
  - Urinary tract disorder [Recovered/Resolved]
